FAERS Safety Report 5672092-3 (Version None)
Quarter: 2008Q2

REPORT INFORMATION
  Report Type: 
  Country: None (occurrence: None)
  Receive Date: 20080219
  Receipt Date: 20071211
  Transmission Date: 20081010
  Serious: No
  Sender: FDA-Public Use
  Company Number: TPA2007A02489

PATIENT
  Age: 6 Decade
  Sex: Male
  Weight: 65.7716 kg

DRUGS (4)
  1. ROZEREM [Suspect]
     Indication: INSOMNIA
     Dosage: 8 MG, HS PRN, PER ORAL
     Route: 048
     Dates: start: 20071001
  2. NORVASC [Concomitant]
  3. LISINOPRIL [Concomitant]
  4. LUNESTA [Concomitant]

REACTIONS (1)
  - SOMNOLENCE [None]
